FAERS Safety Report 5646945-6 (Version None)
Quarter: 2008Q1

REPORT INFORMATION
  Report Type: 
  Country: None (occurrence: None)
  Receive Date: 20080229
  Receipt Date: 20080229
  Transmission Date: 20080703
  Serious: Yes (Other)
  Sender: FDA-Public Use
  Company Number: None

PATIENT
  Age: 44 Year
  Sex: Male
  Weight: 111.1313 kg

DRUGS (1)
  1. VYTORIN [Suspect]
     Indication: LOW DENSITY LIPOPROTEIN
     Dosage: 10/20MG. DAILY/BEDTIME ORAL
     Route: 048
     Dates: start: 20070424, end: 20070903

REACTIONS (3)
  - ASTHENIA [None]
  - MUSCLE INJURY [None]
  - MYALGIA [None]
